FAERS Safety Report 23643878 (Version 2)
Quarter: 2024Q1

REPORT INFORMATION
  Report Type: Spontaneous
  Country: IT (occurrence: None)
  Receive Date: 20240318
  Receipt Date: 20240327
  Transmission Date: 20240409
  Serious: Yes (Hospitalization)
  Sender: FDA-Public Use
  Company Number: None

PATIENT
  Age: 42 Year
  Sex: Male

DRUGS (2)
  1. TOCILIZUMAB [Suspect]
     Active Substance: TOCILIZUMAB
     Indication: Polyarthritis
     Route: 058
     Dates: start: 20240215, end: 20240215
  2. PREDNISONE [Concomitant]
     Active Substance: PREDNISONE

REACTIONS (1)
  - Febrile neutropenia [Recovered/Resolved]

NARRATIVE: CASE EVENT DATE: 20240216
